FAERS Safety Report 10364634 (Version 2)
Quarter: 2014Q3

REPORT INFORMATION
  Report Type: Spontaneous
  Country: DE (occurrence: DE)
  Receive Date: 20140806
  Receipt Date: 20140806
  Transmission Date: 20150326
  Serious: Yes (Hospitalization, Other)
  Sender: FDA-Public Use
  Company Number: PHHY2011DE94537

PATIENT
  Sex: Female

DRUGS (2)
  1. EXFORGE [Suspect]
     Active Substance: AMLODIPINE BESYLATE\VALSARTAN
     Indication: HYPERTENSION
     Dosage: 160/5 MG
     Route: 048
     Dates: start: 201109
  2. NEPRESOL [Concomitant]
     Active Substance: DIHYDRALAZINE SULFATE
     Dosage: UNK

REACTIONS (13)
  - Blood pressure increased [Recovering/Resolving]
  - Vomiting [Unknown]
  - Headache [Unknown]
  - Diarrhoea [Unknown]
  - Dizziness [Unknown]
  - Adrenal disorder [Unknown]
  - Toxicity to various agents [Unknown]
  - Chest discomfort [Unknown]
  - Rheumatic disorder [Unknown]
  - Dyspnoea [Unknown]
  - Abdominal discomfort [Unknown]
  - Rhinitis [Unknown]
  - Back pain [Unknown]
